FAERS Safety Report 13944243 (Version 10)
Quarter: 2020Q3

REPORT INFORMATION
  Report Type: Report from Study
  Country: JP (occurrence: JP)
  Receive Date: 20170907
  Receipt Date: 20181112
  Transmission Date: 20201105
  Serious: Yes (Death, Hospitalization)
  Sender: FDA-Public Use
  Company Number: JP-ASTRAZENECA-2017SE90841

PATIENT
  Age: 25664 Day
  Sex: Male

DRUGS (50)
  1. ETOPOSIDE. [Suspect]
     Active Substance: ETOPOSIDE
     Indication: SMALL CELL LUNG CANCER
     Dosage: 100.0MG/M2 ONCE/SINGLE ADMINISTRATION
     Route: 065
     Dates: start: 20170825, end: 20170825
  2. HALIZON [Concomitant]
     Active Substance: AMPHOTERICIN B
     Indication: PERIODONTITIS
     Route: 048
     Dates: start: 20170829, end: 20171005
  3. GLYCERIN. [Concomitant]
     Active Substance: GLYCERIN
     Indication: PERIODONTITIS
     Dosage: AS REQUIRED
     Route: 061
     Dates: start: 20170825, end: 20171005
  4. ALLELOCK [Concomitant]
     Active Substance: OLOPATADINE HYDROCHLORIDE
     Indication: TOXIC SKIN ERUPTION
     Route: 048
     Dates: start: 20170902, end: 20170913
  5. WHITE PETROLATUM [Concomitant]
     Active Substance: PETROLATUM
     Indication: TOXIC SKIN ERUPTION
     Dosage: PRN
     Route: 061
     Dates: start: 20170902, end: 20170913
  6. MIYA?BM [Concomitant]
     Active Substance: CLOSTRIDIUM BUTYRICUM SPORES STRAIN M-55
     Indication: DIARRHOEA
     Route: 048
     Dates: start: 20170908, end: 20171005
  7. CEFMETAZOLE SODIUM [Concomitant]
     Active Substance: CEFMETAZOLE SODIUM
     Indication: INFECTION PROPHYLAXIS
     Route: 042
     Dates: start: 20170911, end: 20170913
  8. ETOPOSIDE. [Suspect]
     Active Substance: ETOPOSIDE
     Indication: SMALL CELL LUNG CANCER
     Dosage: 100.0MG/M2 ONCE/SINGLE ADMINISTRATION
     Route: 065
     Dates: start: 20170824, end: 20170824
  9. METGLUCO [Concomitant]
     Active Substance: METFORMIN HYDROCHLORIDE
     Indication: TYPE 2 DIABETES MELLITUS
     Route: 048
     Dates: start: 20170824, end: 20171002
  10. NOVAMIN (PROCHLORPERAZINE) [Concomitant]
     Active Substance: PROCHLORPERAZINE
     Indication: NAUSEA
     Dosage: 5.0MG AS REQUIRED
     Route: 048
     Dates: start: 20170828, end: 20170829
  11. MAXIPIME [Concomitant]
     Active Substance: CEFEPIME HYDROCHLORIDE
     Indication: FEBRILE NEUTROPENIA
     Route: 042
     Dates: start: 20170902, end: 20170908
  12. EMEND [Concomitant]
     Active Substance: APREPITANT
     Indication: PREMEDICATION
     Route: 048
     Dates: start: 20170921, end: 20170922
  13. INSULIN GLARGINE [Concomitant]
     Active Substance: INSULIN GLARGINE
     Indication: PREMEDICATION
     Route: 058
     Dates: start: 20170921, end: 20170923
  14. SOSEGON [Concomitant]
     Active Substance: PENTAZOCINE
     Indication: ABDOMINAL PAIN
     Dosage: 15.0MG AS REQUIRED
     Route: 030
     Dates: start: 20170924, end: 20170924
  15. ETOPOSIDE. [Suspect]
     Active Substance: ETOPOSIDE
     Indication: SMALL CELL LUNG CANCER
     Dosage: 80.0MG/M2 ONCE/SINGLE ADMINISTRATION
     Route: 065
     Dates: start: 20170921, end: 20170921
  16. VILDAGLIPTIN [Concomitant]
     Active Substance: VILDAGLIPTIN
     Indication: TYPE 2 DIABETES MELLITUS
     Route: 048
     Dates: end: 20171005
  17. TAKECAB [Concomitant]
     Active Substance: VONOPRAZAN FUMARATE
     Indication: NAUSEA
     Route: 048
     Dates: start: 20170829, end: 20170914
  18. TOUCHRON TAPE [Concomitant]
     Indication: SPINAL OSTEOARTHRITIS
     Route: 061
     Dates: start: 20170831, end: 20171005
  19. AZULENE [Concomitant]
     Active Substance: AZULENE
     Indication: PERIODONTITIS
     Dosage: AS REQUIRED
     Route: 002
     Dates: start: 20170829, end: 20171005
  20. ANTEBATE [Concomitant]
     Active Substance: BETAMETHASONE DIPROPIONATE
     Indication: TOXIC SKIN ERUPTION
     Dosage: AS REQUIRED
     Route: 061
     Dates: start: 20170902, end: 20170913
  21. ATARAX?P [Concomitant]
     Active Substance: HYDROXYZINE HYDROCHLORIDE
     Indication: ABDOMINAL PAIN
     Dosage: 25.0MG AS REQUIRED
     Route: 042
     Dates: start: 20170923, end: 20170925
  22. ETOPOSIDE. [Suspect]
     Active Substance: ETOPOSIDE
     Indication: SMALL CELL LUNG CANCER
     Dosage: 100.0MG/M2 ONCE/SINGLE ADMINISTRATION
     Route: 065
     Dates: start: 20170823, end: 20170823
  23. CARBOPLATIN. [Suspect]
     Active Substance: CARBOPLATIN
     Indication: SMALL CELL LUNG CANCER
     Dosage: 4 AUC
     Route: 065
     Dates: start: 20170920, end: 20170920
  24. GRANISETRON [Concomitant]
     Active Substance: GRANISETRON
     Indication: PREMEDICATION
     Route: 042
     Dates: start: 20170823, end: 20170825
  25. HACHIAZULE [Concomitant]
     Indication: PERIODONTITIS
     Dosage: AS REQUIRED
     Route: 002
     Dates: start: 20170825, end: 20171005
  26. CEFCAPENE PIVOXIL HYDROCHLORIDE [Concomitant]
     Active Substance: CEFCAPENE PIVOXIL HYDROCHLORIDE
     Indication: INFECTION PROPHYLAXIS
     Route: 048
     Dates: start: 20170913, end: 20170915
  27. BFLUID [Concomitant]
     Active Substance: AMINO ACIDS\DEXTROSE\ELECTROLYTES NOS\VITAMINS
     Indication: DECREASED APPETITE
     Route: 042
     Dates: start: 20170913, end: 20170918
  28. JUZENTAIHOTO [Concomitant]
     Active Substance: HERBALS
     Indication: MALAISE
     Route: 048
     Dates: start: 20170913, end: 20171005
  29. MEDI4736 [Suspect]
     Active Substance: DURVALUMAB
     Indication: SMALL CELL LUNG CANCER
     Route: 042
     Dates: start: 20170823, end: 20170823
  30. MEDI4736 [Suspect]
     Active Substance: DURVALUMAB
     Indication: SMALL CELL LUNG CANCER
     Route: 042
     Dates: start: 20170920, end: 20170920
  31. TREMELIMUMAB. [Suspect]
     Active Substance: TREMELIMUMAB
     Indication: SMALL CELL LUNG CANCER
     Route: 042
     Dates: start: 20170823, end: 20170823
  32. DEXART [Suspect]
     Active Substance: DEXAMETHASONE SODIUM PHOSPHATE
     Indication: PREMEDICATION
     Route: 042
     Dates: start: 20170823, end: 20170825
  33. ETOPOSIDE. [Suspect]
     Active Substance: ETOPOSIDE
     Indication: SMALL CELL LUNG CANCER
     Dosage: 80.0MG/M2 ONCE/SINGLE ADMINISTRATION
     Route: 065
     Dates: start: 20170920, end: 20170920
  34. ETOPOSIDE. [Suspect]
     Active Substance: ETOPOSIDE
     Indication: SMALL CELL LUNG CANCER
     Dosage: 80.0MG/M2 ONCE/SINGLE ADMINISTRATION
     Route: 065
     Dates: start: 20170922, end: 20170922
  35. CARBOPLATIN. [Suspect]
     Active Substance: CARBOPLATIN
     Indication: SMALL CELL LUNG CANCER
     Dosage: 5 AUC
     Route: 065
     Dates: start: 20170823, end: 20170823
  36. DEXART [Suspect]
     Active Substance: DEXAMETHASONE SODIUM PHOSPHATE
     Indication: PREMEDICATION
     Route: 042
     Dates: start: 20170920, end: 20170922
  37. BROTIZOLAM [Concomitant]
     Active Substance: BROTIZOLAM
     Indication: INSOMNIA
     Route: 048
     Dates: start: 20170822, end: 20170926
  38. SENNOSIDE [Concomitant]
     Active Substance: SENNOSIDES
     Indication: CONSTIPATION
     Dosage: 24.0MG AS REQUIRED
     Route: 048
     Dates: start: 20170824, end: 20170824
  39. PRIMPERAN [Concomitant]
     Active Substance: METOCLOPRAMIDE HYDROCHLORIDE
     Indication: NAUSEA
     Dosage: 5.0MG AS REQUIRED
     Route: 048
     Dates: start: 20170827, end: 20170828
  40. ZYPREXA [Concomitant]
     Active Substance: OLANZAPINE
     Indication: DECREASED APPETITE
     Route: 048
     Dates: start: 20170912, end: 20170913
  41. TREMELIMUMAB. [Suspect]
     Active Substance: TREMELIMUMAB
     Indication: SMALL CELL LUNG CANCER
     Route: 042
     Dates: start: 20170920, end: 20170920
  42. GLIMEPIRIDE. [Concomitant]
     Active Substance: GLIMEPIRIDE
     Indication: TYPE 2 DIABETES MELLITUS
     Route: 048
     Dates: start: 20170822, end: 20171005
  43. HUMULIN R [Concomitant]
     Active Substance: INSULIN HUMAN
     Indication: TYPE 2 DIABETES MELLITUS
     Dosage: 1.0IU AS REQUIRED
     Route: 058
     Dates: start: 20170822, end: 20171005
  44. GRANISETRON [Concomitant]
     Active Substance: GRANISETRON
     Indication: MALAISE
     Route: 042
     Dates: start: 20170920, end: 20170922
  45. EMEND [Concomitant]
     Active Substance: APREPITANT
     Indication: PREMEDICATION
     Route: 048
     Dates: start: 20170920, end: 20170920
  46. MAGMITT [Concomitant]
     Active Substance: MAGNESIUM OXIDE
     Indication: CONSTIPATION
     Dosage: 330.0MG AS REQUIRED
     Route: 048
     Dates: start: 20170825, end: 20171005
  47. FILGRASTIM [Concomitant]
     Active Substance: FILGRASTIM
     Indication: FEBRILE NEUTROPENIA
     Route: 058
     Dates: start: 20170902, end: 20170908
  48. BUSCOPAN [Concomitant]
     Active Substance: BUTYLSCOPOLAMINE BROMIDE
     Indication: ABDOMINAL PAIN
     Dosage: 20.0MG AS REQUIRED
     Route: 042
     Dates: start: 20170923, end: 20170925
  49. SOSEGON [Concomitant]
     Active Substance: PENTAZOCINE
     Indication: ABDOMINAL PAIN
     Dosage: 15.0MG AS REQUIRED
     Route: 042
     Dates: start: 20170923, end: 20170925
  50. ATARAX?P [Concomitant]
     Active Substance: HYDROXYZINE HYDROCHLORIDE
     Indication: ABDOMINAL PAIN
     Dosage: 25.0MG AS REQUIRED
     Route: 030
     Dates: start: 20170924, end: 20170924

REACTIONS (6)
  - Hyperglycaemia [Recovered/Resolved]
  - Febrile neutropenia [Recovered/Resolved]
  - Abdominal pain [Recovered/Resolved]
  - Pneumonia aspiration [Not Recovered/Not Resolved]
  - Hyponatraemia [Not Recovered/Not Resolved]
  - Death [Fatal]

NARRATIVE: CASE EVENT DATE: 20170902
